FAERS Safety Report 23151881 (Version 8)
Quarter: 2024Q3

REPORT INFORMATION
  Report Type: Report from Study
  Country: US (occurrence: US)
  Receive Date: 20231107
  Receipt Date: 20240913
  Transmission Date: 20241017
  Serious: Yes (Hospitalization, Other)
  Sender: ACADIA PHARMACEUTICALS
  Company Number: US-ACADIA PHARMACEUTICALS INC.-ACA-2023-TRF-004691

PATIENT
  Sex: Female

DRUGS (2)
  1. DAYBUE [Suspect]
     Active Substance: TROFINETIDE
     Indication: Rett syndrome
     Dosage: 30 MILLILITER, BID
     Route: 048
  2. DAYBUE [Suspect]
     Active Substance: TROFINETIDE
     Dosage: 20 MILLILITER BID VIA NASOGASTRIC TUBE

REACTIONS (12)
  - Dehydration [Not Recovered/Not Resolved]
  - Pneumonia [Recovering/Resolving]
  - Product use complaint [Not Recovered/Not Resolved]
  - Gastrointestinal tube insertion [Not Recovered/Not Resolved]
  - Hypophagia [Not Recovered/Not Resolved]
  - Underweight [Not Recovered/Not Resolved]
  - Incorrect route of product administration [Not Recovered/Not Resolved]
  - Underdose [Not Recovered/Not Resolved]
  - Retching [Not Recovered/Not Resolved]
  - Product use complaint [Not Recovered/Not Resolved]
  - Retching [Not Recovered/Not Resolved]
  - Vomiting [Not Recovered/Not Resolved]
